FAERS Safety Report 14871493 (Version 1)
Quarter: 2018Q2

REPORT INFORMATION
  Report Type: Spontaneous
  Country: US (occurrence: US)
  Receive Date: 20180424
  Receipt Date: 20180424
  Transmission Date: 20180711
  Serious: Yes (Hospitalization)
  Sender: FDA-Public Use
  Company Number: None

PATIENT
  Age: 44 Year
  Sex: Female

DRUGS (3)
  1. HUMIRA [Suspect]
     Active Substance: ADALIMUMAB
     Indication: PSORIATIC ARTHROPATHY
     Route: 058
     Dates: start: 20180223, end: 20180420
  2. PREDNISONE. [Concomitant]
     Active Substance: PREDNISONE
  3. EPINEPHRINE. [Concomitant]
     Active Substance: EPINEPHRINE

REACTIONS (3)
  - Rash [None]
  - Dyspnoea [None]
  - Pharyngeal oedema [None]

NARRATIVE: CASE EVENT DATE: 20180420
